FAERS Safety Report 25285642 (Version 1)
Quarter: 2025Q2

REPORT INFORMATION
  Report Type: Spontaneous
  Country: US (occurrence: US)
  Receive Date: 20250509
  Receipt Date: 20250509
  Transmission Date: 20250717
  Serious: Yes (Life-Threatening, Hospitalization, Other)
  Sender: EXELA PHARMA SCIENCES
  Company Number: US-EXELAPHARMA-2025EXLA00066

PATIENT
  Age: 3 Week
  Sex: Female
  Weight: 2.3 kg

DRUGS (7)
  1. GLYRX-PF [Suspect]
     Active Substance: GLYCOPYRROLATE
     Indication: Bradycardia
  2. ATROPINE [Concomitant]
     Active Substance: ATROPINE
  3. ATROPINE [Concomitant]
     Active Substance: ATROPINE
  4. CEFAZOLIN [Concomitant]
     Active Substance: CEFAZOLIN
     Indication: Product used for unknown indication
     Route: 042
  5. SEVOFLURANE [Concomitant]
     Active Substance: SEVOFLURANE
     Indication: Induction of anaesthesia
     Route: 007
  6. ROCURONIUM [Concomitant]
     Active Substance: ROCURONIUM BROMIDE
     Indication: Induction of anaesthesia
     Route: 007
  7. BUPIVACAINE [Concomitant]
     Active Substance: BUPIVACAINE
     Indication: Product used for unknown indication

REACTIONS (2)
  - Drug ineffective [Unknown]
  - Pulseless electrical activity [Recovered/Resolved]
